FAERS Safety Report 8921669 (Version 1)
Quarter: 2012Q4

REPORT INFORMATION
  Report Type: Report from Study
  Country: US (occurrence: US)
  Receive Date: 20121121
  Receipt Date: 20121121
  Transmission Date: 20130627
  Serious: Yes (Hospitalization)
  Sender: FDA-Public Use
  Company Number: US-JNJFOC-20121107518

PATIENT
  Age: 14 Year
  Sex: Female
  Weight: 46.1 kg

DRUGS (9)
  1. INFLIXIMAB, RECOMBINANT [Suspect]
     Indication: CROHN^S DISEASE
     Route: 042
  2. HUMIRA [Concomitant]
     Dates: start: 20110425
  3. NORCO [Concomitant]
  4. LANSOPRAZOLE [Concomitant]
  5. PREDNISONE [Concomitant]
  6. CIPROFLOXACIN [Concomitant]
  7. MELATONIN [Concomitant]
  8. ONDANSETRON [Concomitant]
  9. MULTIVITAMINS WITH IRON [Concomitant]

REACTIONS (1)
  - Idiopathic thrombocytopenic purpura [Not Recovered/Not Resolved]
